FAERS Safety Report 23088698 (Version 1)
Quarter: 2023Q4

REPORT INFORMATION
  Report Type: Spontaneous
  Country: IN (occurrence: IN)
  Receive Date: 20231020
  Receipt Date: 20231020
  Transmission Date: 20240109
  Serious: Yes (Hospitalization, Other)
  Sender: FDA-Public Use
  Company Number: IN-QUAGEN-2023QUALIT00280

PATIENT
  Age: 65 Year
  Sex: Male

DRUGS (4)
  1. TRIAMCINOLONE ACETONIDE [Suspect]
     Active Substance: TRIAMCINOLONE ACETONIDE
     Indication: Diabetic retinopathy
     Dosage: 4MG/0.1ML
     Route: 035
  2. TRIAMCINOLONE ACETONIDE [Suspect]
     Active Substance: TRIAMCINOLONE ACETONIDE
     Indication: Diabetic retinopathy
  3. MOXIFLOXACIN [Concomitant]
     Active Substance: MOXIFLOXACIN
     Indication: Product used for unknown indication
     Route: 065
  4. NEPAFENAC [Concomitant]
     Active Substance: NEPAFENAC
     Indication: Product used for unknown indication
     Route: 065

REACTIONS (2)
  - Pseudoendophthalmitis [Recovering/Resolving]
  - Product use in unapproved indication [Unknown]
